FAERS Safety Report 6929146-0 (Version None)
Quarter: 2010Q3

REPORT INFORMATION
  Report Type: 
  Country: None (occurrence: None)
  Receive Date: 20100817
  Receipt Date: 20100813
  Transmission Date: 20110219
  Serious: Yes (Other)
  Sender: FDA-Public Use
  Company Number: FR-MERCK-1008FRA00044

PATIENT
  Age: 38 Year
  Sex: Male

DRUGS (1)
  1. PROPECIA [Suspect]
     Indication: ALOPECIA
     Route: 048
     Dates: start: 20010101, end: 20081201

REACTIONS (1)
  - AZOOSPERMIA [None]
